FAERS Safety Report 5412516-X (Version None)
Quarter: 2007Q3

REPORT INFORMATION
  Report Type: 
  Country: None (occurrence: None)
  Receive Date: 20070813
  Receipt Date: 20070809
  Transmission Date: 20080115
  Serious: Yes (Life-Threatening, Other)
  Sender: FDA-Public Use
  Company Number: A0669208A

PATIENT
  Age: 48 Year
  Sex: Female

DRUGS (5)
  1. COREG CR [Suspect]
     Dosage: 40MG PER DAY
     Route: 048
     Dates: start: 20070701, end: 20070808
  2. LISINOPRIL [Concomitant]
  3. LASIX [Concomitant]
  4. KLOR-CON [Concomitant]
  5. COREG [Concomitant]
     Route: 048
     Dates: end: 20070701

REACTIONS (4)
  - DIZZINESS [None]
  - FLUSHING [None]
  - HYPERHIDROSIS [None]
  - HYPOTENSION [None]
